FAERS Safety Report 8572899-9 (Version None)
Quarter: 2012Q2

REPORT INFORMATION
  Report Type: 
  Country: None (occurrence: None)
  Receive Date: 20120423
  Receipt Date: 20070611
  Transmission Date: 20120825
  Serious: Yes (Other)
  Sender: FDA-Public Use
  Company Number: PHEH2007US16344

PATIENT
  Age: 68 Year
  Sex: Male
  Weight: 63 kg

DRUGS (2)
  1. EXJADE [Suspect]
     Indication: RENAL DISORDER
     Dosage: 1250 MG, QD, ORAL
     Route: 048
     Dates: start: 20070301, end: 20070401
  2. EXJADE [Suspect]
     Indication: MYELODYSPLASTIC SYNDROME
     Dosage: 1250 MG, QD, ORAL
     Route: 048
     Dates: start: 20070301, end: 20070401

REACTIONS (1)
  - RENAL DISORDER [None]
